FAERS Safety Report 5991846-7 (Version None)
Quarter: 2008Q4

REPORT INFORMATION
  Report Type: 
  Country: None (occurrence: None)
  Receive Date: 20081211
  Receipt Date: 20081202
  Transmission Date: 20090506
  Serious: Yes (Other)
  Sender: FDA-Public Use
  Company Number: NL-B.I. PHARMACEUTICALS,INC./RIDGEFIELD-2008-NL-00725NL

PATIENT
  Sex: Male

DRUGS (6)
  1. SIFROL [Suspect]
     Indication: RESTLESS LEGS SYNDROME
     Dates: start: 20071017, end: 20071111
  2. SIFROL [Suspect]
     Dates: start: 20080130, end: 20080509
  3. NEXIUM [Concomitant]
     Dates: start: 20071201
  4. EFFEXOR [Concomitant]
     Indication: DEPRESSION
     Dosage: 75MG
     Route: 048
     Dates: start: 20040101, end: 20080509
  5. PANTAZOL [Concomitant]
     Dosage: 20MG
     Route: 048
  6. SUPRADYN [Concomitant]

REACTIONS (3)
  - ABDOMINAL DISCOMFORT [None]
  - PARAESTHESIA [None]
  - PEYRONIE'S DISEASE [None]
